FAERS Safety Report 6219881-4 (Version None)
Quarter: 2009Q2

REPORT INFORMATION
  Report Type: 
  Country: None (occurrence: None)
  Receive Date: 20090609
  Receipt Date: 20090504
  Transmission Date: 20091009
  Serious: Yes (Hospitalization)
  Sender: FDA-Public Use
  Company Number: CN-ROCHE-635484

PATIENT
  Age: 52 Year
  Sex: Male

DRUGS (4)
  1. OSELTAMIVIR [Suspect]
     Indication: AVIAN INFLUENZA
     Route: 048
     Dates: start: 20071203
  2. RIMANTADINE HYDROCHLORIDE [Suspect]
     Indication: AVIAN INFLUENZA
     Route: 048
     Dates: start: 20071206
  3. LEVOFLOXACIN [Concomitant]
  4. CORTICOSTEROID NOS [Concomitant]

REACTIONS (3)
  - PNEUMONIA [None]
  - PYREXIA [None]
  - THROMBOCYTOPENIA [None]
